FAERS Safety Report 5341130-X (Version None)
Quarter: 2007Q2

REPORT INFORMATION
  Report Type: 
  Country: None (occurrence: None)
  Receive Date: 20070405
  Receipt Date: 20070108
  Transmission Date: 20071010
  Serious: Yes (Hospitalization)
  Sender: FDA-Public Use
  Company Number: 2007P1000030

PATIENT
  Age: 5 Month
  Sex: Male

DRUGS (1)
  1. BUSULFAN (BUSULFAN) [Suspect]
     Indication: STEM CELL TRANSPLANT
     Dosage: 5.2 ML; IV
     Route: 042
     Dates: start: 20061012, end: 20061015

REACTIONS (1)
  - VENOOCCLUSIVE LIVER DISEASE [None]
